FAERS Safety Report 22303748 (Version 1)
Quarter: 2023Q2

REPORT INFORMATION
  Report Type: Spontaneous
  Country: AU (occurrence: AU)
  Receive Date: 20230510
  Receipt Date: 20230510
  Transmission Date: 20230722
  Serious: Yes (Other)
  Sender: FDA-Public Use
  Company Number: AU-NOVOPROD-1059757

PATIENT
  Age: 76 Year
  Sex: Female

DRUGS (1)
  1. OZEMPIC [Suspect]
     Active Substance: SEMAGLUTIDE
     Indication: Type 2 diabetes mellitus
     Dosage: HIGH DOSE

REACTIONS (5)
  - Diabetic coma [Unknown]
  - Cardiac arrest [Unknown]
  - Cardiac failure [Unknown]
  - Nausea [Unknown]
  - Vomiting [Unknown]
